FAERS Safety Report 19362532 (Version 2)
Quarter: 2021Q2

REPORT INFORMATION
  Report Type: Spontaneous
  Country: CA (occurrence: CA)
  Receive Date: 20210603
  Receipt Date: 20210630
  Transmission Date: 20210717
  Serious: Yes (Other)
  Sender: FDA-Public Use
  Company Number: CA-CELLTRION INC.-2021CA003533

PATIENT

DRUGS (21)
  1. INFLECTRA [Suspect]
     Active Substance: INFLIXIMAB-DYYB
     Dosage: 1100 MG ONE?TIME RESCUE DOSE
     Route: 042
     Dates: start: 20210325, end: 20210325
  2. INFLECTRA [Suspect]
     Active Substance: INFLIXIMAB-DYYB
     Dosage: 1100 MG EVERY 4 WEEKS
     Route: 042
     Dates: start: 20210422
  3. ALBUTEROL [SALBUTAMOL] [Concomitant]
     Active Substance: ALBUTEROL
     Dosage: 150 MG
     Route: 048
  4. VITAMIN C [Concomitant]
     Active Substance: ASCORBIC ACID
     Dosage: 1 DF
  5. INFLECTRA [Suspect]
     Active Substance: INFLIXIMAB-DYYB
     Dosage: 1100 MG ONE?TIME RESCUE DOSE
     Route: 042
     Dates: start: 20210225, end: 20210225
  6. INFLECTRA [Suspect]
     Active Substance: INFLIXIMAB-DYYB
     Dosage: 1100 MG ONE?TIME RESCUE DOSE
     Route: 042
     Dates: start: 20210225, end: 20210225
  7. INFLECTRA [Suspect]
     Active Substance: INFLIXIMAB-DYYB
     Dosage: 1100 MG ONE?TIME RESCUE DOSE
     Route: 042
     Dates: start: 20210225, end: 20210225
  8. INFLECTRA [Suspect]
     Active Substance: INFLIXIMAB-DYYB
     Dosage: 1100 MG EVERY 4 WEEKS
     Route: 042
     Dates: start: 20210518
  9. GINSENGIN [Concomitant]
     Dosage: 1 DF
  10. INFLECTRA [Suspect]
     Active Substance: INFLIXIMAB-DYYB
     Dosage: 1100 MG EVERY 4 WEEKS
     Route: 042
     Dates: start: 20210615
  11. IMURAN [Concomitant]
     Active Substance: AZATHIOPRINE
     Dosage: 50 MG
     Route: 048
  12. INFLECTRA [Suspect]
     Active Substance: INFLIXIMAB-DYYB
     Indication: COLITIS ULCERATIVE
     Dosage: 600 MG Q0
     Route: 042
     Dates: start: 20210127, end: 20210127
  13. INFLECTRA [Suspect]
     Active Substance: INFLIXIMAB-DYYB
     Dosage: 600 MG Q0
     Route: 042
     Dates: start: 20210127, end: 20210127
  14. INFLECTRA [Suspect]
     Active Substance: INFLIXIMAB-DYYB
     Dosage: 1100 MG ONE?TIME RESCUE DOSE
     Route: 042
     Dates: start: 20210225, end: 20210225
  15. PREDNISONE. [Concomitant]
     Active Substance: PREDNISONE
     Dosage: 40 MG
     Route: 048
  16. ZINC. [Concomitant]
     Active Substance: ZINC
     Dosage: 1 DF
  17. INFLECTRA [Suspect]
     Active Substance: INFLIXIMAB-DYYB
     Dosage: 600 MG Q2
     Route: 042
     Dates: start: 20210211, end: 20210211
  18. VITAMIN D [ERGOCALCIFEROL] [Concomitant]
     Active Substance: ERGOCALCIFEROL
     Dosage: 1 DF (DOSAGE INFORMATION NOT AVAILABLE)
  19. INFLECTRA [Suspect]
     Active Substance: INFLIXIMAB-DYYB
     Dosage: 1100 MG ONE?TIME RESCUE DOSE
     Route: 042
     Dates: start: 20210225, end: 20210225
  20. INFLECTRA [Suspect]
     Active Substance: INFLIXIMAB-DYYB
     Dosage: 1100 MG ONE?TIME RESCUE DOSE
     Route: 042
     Dates: start: 20210325, end: 20210325
  21. PREDNISONE. [Concomitant]
     Active Substance: PREDNISONE
     Dosage: 55 MG
     Dates: start: 20210527

REACTIONS (11)
  - Blood pressure fluctuation [Unknown]
  - Blood pressure systolic increased [Unknown]
  - Condition aggravated [Unknown]
  - Haematochezia [Not Recovered/Not Resolved]
  - Blood pressure diastolic decreased [Unknown]
  - Fatigue [Unknown]
  - Off label use [Unknown]
  - Therapeutic response shortened [Unknown]
  - Malaise [Not Recovered/Not Resolved]
  - Migraine [Unknown]
  - Nausea [Not Recovered/Not Resolved]

NARRATIVE: CASE EVENT DATE: 20210225
